FAERS Safety Report 7742499-9 (Version None)
Quarter: 2011Q3

REPORT INFORMATION
  Report Type: 
  Country: None (occurrence: None)
  Receive Date: 20110908
  Receipt Date: 20110908
  Transmission Date: 20111222
  Serious: Yes (Life-Threatening)
  Sender: FDA-Public Use
  Company Number: None

PATIENT
  Age: 64 Year
  Sex: Male
  Weight: 96.7 kg

DRUGS (2)
  1. GEMFIBROZIL [Suspect]
     Indication: HYPERLIPIDAEMIA
     Dosage: 600 MG BID PO
     Route: 048
     Dates: start: 20070815, end: 20110828
  2. ROSUVASTATIN [Suspect]
     Indication: HYPERLIPIDAEMIA
     Dosage: 40 MG EVERY DAY PO
     Route: 048
     Dates: start: 20081211, end: 20110828

REACTIONS (4)
  - RHABDOMYOLYSIS [None]
  - BLOOD CREATININE INCREASED [None]
  - HAEMODIALYSIS [None]
  - BLOOD UREA INCREASED [None]
